FAERS Safety Report 7134177-4 (Version None)
Quarter: 2010Q4

REPORT INFORMATION
  Report Type: 
  Country: None (occurrence: None)
  Receive Date: 20101203
  Receipt Date: 20101123
  Transmission Date: 20110411
  Serious: Yes (Hospitalization, Other)
  Sender: FDA-Public Use
  Company Number: NL-ABBOTT-10P-114-0687409-00

PATIENT
  Sex: Male
  Weight: 75 kg

DRUGS (17)
  1. HUMIRA [Suspect]
     Indication: RHEUMATOID ARTHRITIS
     Route: 058
     Dates: start: 20090301, end: 20090901
  2. HUMIRA [Suspect]
     Route: 058
  3. HUMIRA [Suspect]
     Route: 058
     Dates: start: 20101122
  4. ACENOCOUMAROL [Concomitant]
     Indication: THROMBOSIS
     Dosage: ACCORDING TO SCHEDULE
     Route: 048
     Dates: start: 20080101
  5. AMLODIPINE MALEATE [Concomitant]
     Indication: HYPERTENSION
     Route: 048
     Dates: start: 20080101
  6. BISOPROLOL [Concomitant]
     Indication: HYPERTENSION
     Route: 048
     Dates: start: 20080101
  7. ENALAPRIL MALEATE [Concomitant]
     Indication: HYPERTENSION
     Route: 048
     Dates: start: 20080101
  8. FOLIC ACID [Concomitant]
     Indication: VITAMIN SUPPLEMENTATION
     Route: 048
  9. HYDROCHLOROTHIAZIDE [Concomitant]
     Indication: HYPERTENSION
     Route: 048
     Dates: start: 20080101
  10. METHOTREXATE [Concomitant]
     Indication: RHEUMATOID ARTHRITIS
     Route: 048
  11. OMEPRAZOLE [Concomitant]
     Indication: GASTRIC DISORDER
     Route: 048
     Dates: start: 20080101
  12. OMEPRAZOLE [Concomitant]
     Indication: PROPHYLAXIS
  13. SALMETEROL/FLUTICASON [Concomitant]
     Indication: CHRONIC OBSTRUCTIVE PULMONARY DISEASE
     Dosage: 50/100 MCG
     Route: 055
     Dates: start: 20070101
  14. SIMVASTATIN [Concomitant]
     Indication: BLOOD CHOLESTEROL INCREASED
     Route: 048
     Dates: start: 20080101
  15. TEMAZEPAM [Concomitant]
     Indication: INSOMNIA
     Route: 048
     Dates: start: 20080101
  16. TIOTROPIUM [Concomitant]
     Indication: CHRONIC OBSTRUCTIVE PULMONARY DISEASE
     Route: 055
     Dates: start: 20070101
  17. TRAMADOL HCL [Concomitant]
     Indication: ARTHRALGIA
     Dosage: 1 DOSE 3-4 TIMES DAILY
     Dates: start: 20030101

REACTIONS (3)
  - FUNGAL INFECTION [None]
  - PNEUMONIA [None]
  - TERMINAL STATE [None]
